FAERS Safety Report 13149966 (Version 1)
Quarter: 2017Q1

REPORT INFORMATION
  Report Type: Spontaneous
  Country: DK (occurrence: DK)
  Receive Date: 20170125
  Receipt Date: 20170125
  Transmission Date: 20170428
  Serious: Yes (Other)
  Sender: FDA-Public Use
  Company Number: DK-CELGENEUS-163-22393-14074468

PATIENT

DRUGS (2)
  1. ISTODAX [Suspect]
     Active Substance: ROMIDEPSIN
     Indication: HIV INFECTION
     Dosage: 5 MILLIGRAM/SQ. METER
     Route: 050
  2. ISTODAX [Suspect]
     Active Substance: ROMIDEPSIN
     Indication: OFF LABEL USE

REACTIONS (19)
  - Gastrooesophageal reflux disease [Unknown]
  - Dysgeusia [Unknown]
  - Viraemia [Unknown]
  - Hot flush [Unknown]
  - Abdominal pain [Unknown]
  - Chills [Unknown]
  - Constipation [Unknown]
  - Headache [Unknown]
  - Malaise [Unknown]
  - Vomiting [Unknown]
  - Diarrhoea [Unknown]
  - Nausea [Unknown]
  - Fatigue [Unknown]
  - Gastrointestinal sounds abnormal [Unknown]
  - Parosmia [Unknown]
  - Dizziness [Unknown]
  - Decreased appetite [Unknown]
  - Fracture [Unknown]
  - Palpitations [Unknown]
